FAERS Safety Report 6804180-X (Version None)
Quarter: 2010Q2

REPORT INFORMATION
  Report Type: 
  Country: None (occurrence: None)
  Receive Date: 20100628
  Receipt Date: 20070117
  Transmission Date: 20101027
  Serious: No
  Sender: FDA-Public Use
  Company Number: US-PFIZER INC-2007003752

PATIENT
  Sex: Female
  Weight: 58.06 kg

DRUGS (13)
  1. CADUET [Suspect]
     Indication: HYPERTENSION
     Dosage: 5/10MG
     Dates: start: 20070102, end: 20070105
  2. CADUET [Suspect]
     Indication: BLOOD CHOLESTEROL INCREASED
  3. METOPROLOL [Concomitant]
     Indication: HYPERTENSION
  4. NORVASC [Concomitant]
     Indication: HYPERTENSION
  5. LIPITOR [Concomitant]
  6. PLAVIX [Concomitant]
     Indication: CARDIOVASCULAR DISORDER
  7. PLAVIX [Concomitant]
  8. PLETAL [Concomitant]
     Indication: CARDIOVASCULAR DISORDER
  9. CALCITRATE [Concomitant]
  10. ALL OTHER THERAPEUTIC PRODUCTS [Concomitant]
     Dates: start: 20060301
  11. VITAMIN B6 [Concomitant]
  12. VITAMIN B-12 [Concomitant]
  13. AMITRIPTYLINE [Concomitant]

REACTIONS (2)
  - ABDOMINAL PAIN UPPER [None]
  - NAUSEA [None]
